FAERS Safety Report 23357240 (Version 1)
Quarter: 2023Q4

REPORT INFORMATION
  Report Type: Spontaneous
  Country: US (occurrence: None)
  Receive Date: 20231229
  Receipt Date: 20231229
  Transmission Date: 20240110
  Serious: Yes (Hospitalization)
  Sender: FDA-Public Use
  Company Number: None

PATIENT
  Age: 37 Year
  Sex: Female

DRUGS (4)
  1. OPSUMIT [Suspect]
     Active Substance: MACITENTAN
     Indication: Pulmonary arterial hypertension
     Dosage: FREQUENCY : DAILY;?
     Route: 048
     Dates: start: 202103
  2. REMTY WNTY RPLMT PUMP KIT [Concomitant]
  3. ADEMPAS [Concomitant]
     Active Substance: RIOCIGUAT
  4. REMODULIN [Concomitant]
     Active Substance: TREPROSTINIL

REACTIONS (4)
  - Device issue [None]
  - Fatigue [None]
  - Dyspnoea [None]
  - Hypoxia [None]

NARRATIVE: CASE EVENT DATE: 20231227
